FAERS Safety Report 10033417 (Version 1)
Quarter: 2014Q1

REPORT INFORMATION
  Report Type: Spontaneous
  Country: FR (occurrence: FR)
  Receive Date: 20140325
  Receipt Date: 20140325
  Transmission Date: 20141002
  Serious: Yes (Other)
  Sender: FDA-Public Use
  Company Number: FR-ROCHE-1369667

PATIENT
  Age: 27 Year
  Sex: Male

DRUGS (2)
  1. XOLAIR [Suspect]
     Indication: ASTHMA
     Route: 058
     Dates: start: 2013
  2. XOLAIR [Suspect]
     Route: 058
     Dates: start: 20130303

REACTIONS (1)
  - Influenza like illness [Recovering/Resolving]
